FAERS Safety Report 6694372-5 (Version None)
Quarter: 2010Q2

REPORT INFORMATION
  Report Type: 
  Country: None (occurrence: None)
  Receive Date: 20100423
  Receipt Date: 20100415
  Transmission Date: 20101027
  Serious: Yes (Hospitalization, Other)
  Sender: FDA-Public Use
  Company Number: US-PFIZER INC-2010029435

PATIENT
  Sex: Female
  Weight: 40.816 kg

DRUGS (10)
  1. LIPITOR [Suspect]
     Indication: BLOOD CHOLESTEROL
     Dosage: 5 MG, DAILY
     Dates: start: 20040422
  2. LIPITOR [Suspect]
     Dosage: 10 MG, UNK
     Dates: start: 20040101
  3. METOPROLOL [Suspect]
     Indication: ATRIAL FIBRILLATION
     Dosage: 12.5 MG,DAILY
     Dates: start: 20080101
  4. METOPROLOL [Suspect]
     Dosage: 25 MG, DAILY
  5. ZONISAMIDE [Concomitant]
     Indication: CONVULSION
     Dosage: UNK
  6. ISOSORBIDE [Concomitant]
     Dosage: UNK
  7. LEVOTHYROXINE [Concomitant]
     Indication: THYROID DISORDER
     Dosage: UNK
  8. DIGOXIN [Concomitant]
     Dosage: UNK
  9. WARFARIN [Concomitant]
     Dosage: UNK
  10. TOVIAZ [Concomitant]
     Dosage: UNK

REACTIONS (5)
  - CEREBROVASCULAR ACCIDENT [None]
  - CONVULSION [None]
  - FALL [None]
  - HIP FRACTURE [None]
  - HIP SURGERY [None]
